FAERS Safety Report 5700956-0 (Version None)
Quarter: 2008Q2

REPORT INFORMATION
  Report Type: 
  Country: None (occurrence: None)
  Receive Date: 20080410
  Receipt Date: 20080401
  Transmission Date: 20081010
  Serious: Yes (Death, Hospitalization)
  Sender: FDA-Public Use
  Company Number: D0055203A

PATIENT
  Age: 72 Year
  Sex: Male
  Weight: 79 kg

DRUGS (5)
  1. AVANDAMET [Suspect]
     Indication: TYPE 2 DIABETES MELLITUS
     Route: 048
     Dates: start: 20070601
  2. SIMVASTATIN [Concomitant]
     Dosage: 20MG UNKNOWN
     Route: 048
  3. ATENOLOL [Concomitant]
     Dosage: 25MG UNKNOWN
     Route: 048
  4. METFORMIN HCL [Concomitant]
     Indication: TYPE 2 DIABETES MELLITUS
     Route: 048
  5. VERAPAMIL [Concomitant]
     Indication: TACHYCARDIA
     Route: 065

REACTIONS (19)
  - ACUTE HEPATIC FAILURE [None]
  - ANOREXIA [None]
  - BLOOD BILIRUBIN INCREASED [None]
  - DRUG ERUPTION [None]
  - DRUG TOXICITY [None]
  - GENERAL PHYSICAL HEALTH DETERIORATION [None]
  - HEPATIC FAILURE [None]
  - HEPATORENAL SYNDROME [None]
  - JAUNDICE [None]
  - NAUSEA [None]
  - OEDEMA PERIPHERAL [None]
  - PEMPHIGOID [None]
  - PNEUMONIA ASPIRATION [None]
  - RENAL FAILURE [None]
  - RESPIRATORY FAILURE [None]
  - SEPSIS [None]
  - SOMNOLENCE [None]
  - TRANSAMINASES INCREASED [None]
  - VOMITING [None]
